FAERS Safety Report 5031961-8 (Version None)
Quarter: 2006Q2

REPORT INFORMATION
  Report Type: 
  Country: None (occurrence: None)
  Receive Date: 20060619
  Receipt Date: 20060605
  Transmission Date: 20061013
  Serious: Yes (Other)
  Sender: FDA-Public Use
  Company Number: JP200605003739

PATIENT
  Age: 47 Year
  Sex: Female
  Weight: 87.6 kg

DRUGS (7)
  1. ZYPREXA [Suspect]
     Indication: SCHIZOPHRENIA
     Dosage: 10 MG, DAILY (1/D), ORAL
     Route: 048
     Dates: start: 20060509, end: 20060515
  2. HIBERNA (PROMETHAZINE HYDROCHLORIDE) [Concomitant]
  3. ARTANE [Concomitant]
  4. AKINETON [Concomitant]
  5. CLONAZEPAM [Concomitant]
  6. ISONIAZID [Concomitant]
  7. RISPERDAL [Concomitant]

REACTIONS (4)
  - ASPARTATE AMINOTRANSFERASE INCREASED [None]
  - FEELING ABNORMAL [None]
  - LOSS OF CONSCIOUSNESS [None]
  - SLEEP APNOEA SYNDROME [None]
